FAERS Safety Report 14425424 (Version 1)
Quarter: 2018Q1

REPORT INFORMATION
  Report Type: Spontaneous
  Country: US (occurrence: US)
  Receive Date: 20180123
  Receipt Date: 20180123
  Transmission Date: 20180509
  Serious: No
  Sender: FDA-Public Use
  Company Number: US-PERRIGO-17US003471

PATIENT
  Age: 3 Year
  Sex: Female
  Weight: 15.42 kg

DRUGS (2)
  1. IBUPROFEN. [Suspect]
     Active Substance: IBUPROFEN
     Indication: OROPHARYNGEAL PAIN
     Dosage: 500 MG, SINGLE
     Route: 048
     Dates: start: 20170420, end: 20170420
  2. IBUPROFEN. [Suspect]
     Active Substance: IBUPROFEN
     Indication: COUGH
     Dosage: 100 MG, SINGLE
     Route: 048
     Dates: start: 20170420, end: 20170420

REACTIONS (2)
  - Off label use [Recovered/Resolved]
  - Accidental exposure to product [Recovered/Resolved]

NARRATIVE: CASE EVENT DATE: 20170420
